FAERS Safety Report 8423717-0 (Version None)
Quarter: 2012Q2

REPORT INFORMATION
  Report Type: 
  Country: None (occurrence: None)
  Receive Date: 20120608
  Receipt Date: 20120322
  Transmission Date: 20120825
  Serious: No
  Sender: FDA-Public Use
  Company Number: US-ASTRAZENECA-2011SE51157

PATIENT
  Age: 77 Year
  Sex: Female

DRUGS (1)
  1. ATACAND [Suspect]
     Route: 048

REACTIONS (8)
  - ADVERSE DRUG REACTION [None]
  - PRURITUS [None]
  - OEDEMA MOUTH [None]
  - JOINT INJURY [None]
  - FALL [None]
  - STOMATITIS [None]
  - LIMB INJURY [None]
  - ORAL PAIN [None]
